FAERS Safety Report 9668632 (Version 5)
Quarter: 2015Q2

REPORT INFORMATION
  Report Type: Spontaneous
  Country: GB (occurrence: GB)
  Receive Date: 20131105
  Receipt Date: 20150506
  Transmission Date: 20150821
  Serious: Yes (Other)
  Sender: FDA-Public Use
  Company Number: GB-ROCHE-1299446

PATIENT
  Sex: Female
  Weight: 83 kg

DRUGS (9)
  1. XOLAIR [Suspect]
     Active Substance: OMALIZUMAB
     Indication: PSYCHOTIC DISORDER
  2. SERETIDE [Concomitant]
     Active Substance: FLUTICASONE FUROATE\SALMETEROL XINAFOATE
  3. ALENDRONATE [Concomitant]
     Active Substance: ALENDRONATE SODIUM
  4. XOLAIR [Suspect]
     Active Substance: OMALIZUMAB
     Indication: RASH
  5. QVAR [Concomitant]
     Active Substance: BECLOMETHASONE DIPROPIONATE
  6. PREDNISOLONE. [Concomitant]
     Active Substance: PREDNISOLONE
  7. TIOTROPIUM [Concomitant]
     Active Substance: TIOTROPIUM
  8. XOLAIR [Suspect]
     Active Substance: OMALIZUMAB
     Indication: ASTHMA
     Dosage: FREQUENCY: EVERY 2 TO 4 WEEKS
     Route: 058
     Dates: start: 20130912, end: 20131107
  9. MONTELUKAST [Concomitant]
     Active Substance: MONTELUKAST SODIUM

REACTIONS (3)
  - Anaphylactic reaction [Recovered/Resolved]
  - Hypersensitivity [Unknown]
  - Product use issue [Unknown]
